FAERS Safety Report 7517019-4 (Version None)
Quarter: 2011Q2

REPORT INFORMATION
  Report Type: 
  Country: None (occurrence: None)
  Receive Date: 20110526
  Receipt Date: 20110526
  Transmission Date: 20111010
  Serious: Yes (Life-Threatening, Hospitalization)
  Sender: FDA-Public Use
  Company Number: None

PATIENT
  Age: 7 Year
  Sex: Female
  Weight: 24.1 kg

DRUGS (1)
  1. IBUPROFEN [Suspect]
     Indication: EAR PAIN
     Dosage: 2 TEASPOONS ONCE ORAL
     Route: 048
     Dates: start: 20110319

REACTIONS (6)
  - CRYING [None]
  - HEART RATE INCREASED [None]
  - TREMOR [None]
  - PRODUCT TASTE ABNORMAL [None]
  - FEAR [None]
  - DYSPNOEA [None]
